FAERS Safety Report 9714643 (Version 2)
Quarter: 2014Q1

REPORT INFORMATION
  Report Type: Spontaneous
  Country: US (occurrence: US)
  Receive Date: 20131126
  Receipt Date: 20140110
  Transmission Date: 20141002
  Serious: Yes (Other)
  Sender: FDA-Public Use
  Company Number: US-TEVA-445917USA

PATIENT
  Age: 31 Year
  Sex: Female
  Weight: 54.03 kg

DRUGS (4)
  1. PARAGARD 380A [Suspect]
     Indication: CONTRACEPTION
     Route: 015
     Dates: start: 20120419, end: 20131118
  2. CYMBALTA [Concomitant]
     Indication: ANTIDEPRESSANT THERAPY
  3. ANTICOAGULANT [Concomitant]
     Indication: DEEP VEIN THROMBOSIS
  4. ANTICOAGULANT [Concomitant]
     Indication: CEREBROVASCULAR ACCIDENT

REACTIONS (3)
  - Device dislocation [Recovered/Resolved]
  - Pelvic discomfort [Unknown]
  - Dyspareunia [Unknown]
